FAERS Safety Report 9543771 (Version 2)
Quarter: 2014Q1

REPORT INFORMATION
  Report Type: Spontaneous
  Country: US (occurrence: None)
  Receive Date: 20130524
  Receipt Date: 20130724
  Transmission Date: 20141002
  Serious: Yes (Other)
  Sender: FDA-Public Use
  Company Number: PHEH2013US002243

PATIENT
  Age: 48 Year
  Sex: Male
  Weight: 93.4 kg

DRUGS (1)
  1. GILENYA [Suspect]
     Indication: MULTIPLE SCLEROSIS
     Route: 048
     Dates: start: 20130110, end: 20130123

REACTIONS (7)
  - Pneumonia bacterial [None]
  - Influenza [None]
  - Dizziness [None]
  - Respiratory tract congestion [None]
  - Wheezing [None]
  - Cough [None]
  - Pneumonia viral [None]
